FAERS Safety Report 6665374-X (Version None)
Quarter: 2010Q2

REPORT INFORMATION
  Report Type: 
  Country: None (occurrence: None)
  Receive Date: 20100402
  Receipt Date: 20100329
  Transmission Date: 20101027
  Serious: Yes (Death, Hospitalization)
  Sender: FDA-Public Use
  Company Number: GB-ELI_LILLY_AND_COMPANY-GB200912000402

PATIENT
  Sex: Female

DRUGS (23)
  1. TADALAFIL [Suspect]
     Indication: PULMONARY ARTERIAL HYPERTENSION
     Dosage: 20 MG, DAILY (1/D)
     Route: 048
     Dates: start: 20080508
  2. FUCITHALMIC [Concomitant]
     Dosage: UNK, UNK
     Dates: start: 20090302
  3. VISCOTEARS [Concomitant]
     Dates: start: 20090302
  4. PREDNISOLONE SODIUM PHOSPHATE [Concomitant]
     Dosage: 5%
     Dates: start: 20090302
  5. FUROSEMIDE [Concomitant]
     Dates: start: 20090301
  6. GABAPENTIN [Concomitant]
     Dosage: 300 MG, 2/D
     Route: 048
     Dates: start: 20090301
  7. PARACETAMOL [Concomitant]
     Dosage: 1 G, DAILY (1/D)
     Route: 048
     Dates: start: 20090301
  8. DIHYDROCODEINE BITARTRATE INJ [Concomitant]
     Dates: start: 20090610
  9. ZOVIRAX /00587301/ [Concomitant]
     Dates: start: 20091030
  10. MAXIDEX [Concomitant]
     Dates: start: 20091030
  11. AMPICILLIN SODIUM/SULBACTAM SODIUM [Concomitant]
     Dosage: UNK, UNK
     Dates: start: 20091128, end: 20091205
  12. ACYCLOVIR SODIUM [Concomitant]
     Dosage: UNK, UNK
     Route: 048
     Dates: start: 20091128, end: 20091202
  13. ZOPICLONE [Concomitant]
     Dosage: 3.75 MG, AT NIGHT
     Route: 048
     Dates: start: 20091201
  14. TRAMADOL HCL [Concomitant]
     Dosage: 100 MG, DAILY (1/D)
     Route: 048
     Dates: start: 20091201
  15. MOVICOL [Concomitant]
     Dosage: UNK, 2/D
     Route: 048
     Dates: start: 20091201
  16. CLINUTREN DESSERT [Concomitant]
     Dosage: UNK, 3/D
     Dates: start: 20091201
  17. CALOGEN [Concomitant]
     Dosage: UNK, 2/D
     Dates: start: 20091201
  18. FERROUS SULFATE TAB [Concomitant]
     Dosage: 200 MG, 3/D
     Dates: start: 20091201
  19. ACYCLOVIR SODIUM [Concomitant]
     Dosage: EYE DROPS 3% LEFT EYE
  20. MYCOPHENOLATE MOFETIL [Concomitant]
     Dosage: 250 MG, 2/D
     Route: 048
  21. BOSENTAN [Concomitant]
     Dosage: 62.5 MG, 2/D
     Route: 048
  22. WARFARIN SODIUM [Concomitant]
     Dosage: AS PER INR
     Dates: end: 20100203
  23. ALENDRONATE SODIUM [Concomitant]
     Dosage: 70 MG, WEEKLY (1/W)
     Route: 048

REACTIONS (4)
  - FALL [None]
  - FRACTURED SACRUM [None]
  - INTERVERTEBRAL DISC PROTRUSION [None]
  - PNEUMONIA [None]
